FAERS Safety Report 15383567 (Version 4)
Quarter: 2019Q4

REPORT INFORMATION
  Report Type: Spontaneous
  Country: US (occurrence: US)
  Receive Date: 20180913
  Receipt Date: 20191212
  Transmission Date: 20200122
  Serious: No
  Sender: FDA-Public Use
  Company Number: US-ACTELION-A-NJ2018-175547

PATIENT
  Age: 76 Year
  Sex: Female
  Weight: 57.6 kg

DRUGS (5)
  1. METOPROLOL. [Concomitant]
     Active Substance: METOPROLOL
     Dosage: 50 MG, QD
  2. OPSUMIT [Suspect]
     Active Substance: MACITENTAN
     Indication: PULMONARY HYPERTENSION
     Dosage: 10 MG, QD
     Route: 048
     Dates: start: 20180707
  3. LASIX [Concomitant]
     Active Substance: FUROSEMIDE
     Dosage: UNK
  4. SILDENAFIL. [Concomitant]
     Active Substance: SILDENAFIL
     Dosage: 20 MG, QD
  5. TYVASO [Suspect]
     Active Substance: TREPROSTINIL
     Indication: PULMONARY HYPERTENSION
     Route: 065

REACTIONS (14)
  - Device issue [Unknown]
  - Dysphagia [Unknown]
  - Choking [Unknown]
  - Head injury [Unknown]
  - Seasonal allergy [Unknown]
  - Eye pruritus [Unknown]
  - Loss of consciousness [Unknown]
  - Malaise [Recovered/Resolved]
  - Pneumonia [Unknown]
  - Sneezing [Unknown]
  - Hypotension [Unknown]
  - Headache [Unknown]
  - Product dose omission [Unknown]
  - Cough [Unknown]

NARRATIVE: CASE EVENT DATE: 201807
